FAERS Safety Report 22089951 (Version 1)
Quarter: 2023Q1

REPORT INFORMATION
  Report Type: Spontaneous
  Country: US (occurrence: None)
  Receive Date: 20230312
  Receipt Date: 20230312
  Transmission Date: 20230417
  Serious: Yes (Hospitalization)
  Sender: FDA-Public Use
  Company Number: None

PATIENT
  Age: 61 Year
  Sex: Female
  Weight: 72.39 kg

DRUGS (15)
  1. LENALIDOMIDE [Suspect]
     Active Substance: LENALIDOMIDE
     Indication: Plasma cell myeloma
     Dosage: OTHER FREQUENCY : 21DON7DOFF;?
     Route: 048
     Dates: start: 202210
  2. ACETAMINOPHEN [Concomitant]
  3. ALBUTEROL [Concomitant]
  4. ASPIRIN [Concomitant]
  5. AZITHROMYCIN [Concomitant]
  6. ESCITALOPRAM [Concomitant]
  7. FAMOTIDINE [Concomitant]
  8. GABAPENTIN [Concomitant]
  9. KEPPRA [Concomitant]
  10. LEVOTHYROXINE [Concomitant]
     Active Substance: LEVOTHYROXINE
  11. ONDANSETRON [Concomitant]
  12. POTASSIUM CHLORIDE ER [Concomitant]
  13. PROAIR HFA [Concomitant]
  14. TRAMADOL [Concomitant]
  15. WARFARIN SODIUM [Concomitant]

REACTIONS (1)
  - Bone abscess [None]
